FAERS Safety Report 5683236-1 (Version None)
Quarter: 2008Q1

REPORT INFORMATION
  Report Type: 
  Country: None (occurrence: None)
  Receive Date: 20080326
  Receipt Date: 20080310
  Transmission Date: 20080703
  Serious: No
  Sender: FDA-Public Use
  Company Number: 002#2#2008-00081

PATIENT
  Age: 71 Year
  Sex: Female
  Weight: 89.3586 kg

DRUGS (3)
  1. NEUPRO [Suspect]
     Indication: PARKINSON'S DISEASE
     Dosage: 6 MG/24H; 1 IN 1 D, TRANSDERMAL
     Route: 062
     Dates: start: 20071128
  2. NAPROXEN [Concomitant]
  3. CARBIDOPA AND LEVODOPA [Concomitant]

REACTIONS (1)
  - PHARMACEUTICAL PRODUCT COMPLAINT [None]
